FAERS Safety Report 15390928 (Version 1)
Quarter: 2018Q3

REPORT INFORMATION
  Report Type: Spontaneous
  Country: US (occurrence: US)
  Receive Date: 20180910
  Receipt Date: 20180910
  Transmission Date: 20181010
  Serious: Yes (Other)
  Sender: FDA-Public Use
  Company Number: None

PATIENT
  Age: 44 Year
  Sex: Female
  Weight: 102.15 kg

DRUGS (10)
  1. MAPAP650MG PO [Concomitant]
     Dates: start: 20180907, end: 20180907
  2. DIPHENHYDRAMINE 50MG IV [Concomitant]
     Dates: start: 20180907, end: 20180907
  3. OCREVUS [Suspect]
     Active Substance: OCRELIZUMAB
     Indication: MULTIPLE SCLEROSIS
     Dosage: ?          OTHER FREQUENCY:EVERY 6 MONTH;?
     Route: 017
  4. SOLUMEDROL 125MG IV [Concomitant]
     Dates: start: 20180907, end: 20180907
  5. OXYBUTYNIN 5MG PO [Concomitant]
  6. RANITIDIE 50MG IV [Concomitant]
     Dates: start: 20180907, end: 20180907
  7. DOCUSATE SODIUM100MG [Concomitant]
  8. PANTOPRAZOLE SODIUM 40MG PO BID [Concomitant]
  9. ONDANSETRON 40 MG PRN [Concomitant]
  10. DICYCLOMINE HCL 20MG PO QID [Concomitant]

REACTIONS (6)
  - Pharyngeal disorder [None]
  - Grimacing [None]
  - Throat irritation [None]
  - Pruritus [None]
  - Urticaria [None]
  - Oropharyngeal pain [None]

NARRATIVE: CASE EVENT DATE: 20180907
